FAERS Safety Report 5585242-4 (Version None)
Quarter: 2008Q1

REPORT INFORMATION
  Report Type: 
  Country: None (occurrence: None)
  Receive Date: 20080104
  Receipt Date: 20080104
  Transmission Date: 20080703
  Serious: Yes (Hospitalization)
  Sender: FDA-Public Use
  Company Number: None

PATIENT
  Sex: Male

DRUGS (1)
  1. MORPHINE [Suspect]
     Dosage: IV
     Route: 042

REACTIONS (2)
  - SEDATION [None]
  - UNRESPONSIVE TO STIMULI [None]
